FAERS Safety Report 8546100-6 (Version None)
Quarter: 2012Q3

REPORT INFORMATION
  Report Type: 
  Country: None (occurrence: None)
  Receive Date: 20120727
  Receipt Date: 20111208
  Transmission Date: 20120928
  Serious: No
  Sender: FDA-Public Use
  Company Number: US-ASTRAZENECA-2011SE74540

PATIENT
  Age: 38 Year
  Sex: Female
  Weight: 65.8 kg

DRUGS (4)
  1. ATEROL [Concomitant]
  2. SEROQUEL XR [Suspect]
     Indication: BIPOLAR I DISORDER
     Route: 048
  3. SUBOXONE [Concomitant]
     Indication: DRUG WITHDRAWAL MAINTENANCE THERAPY
  4. SEROQUEL XR [Suspect]
     Dosage: CUTTING 200 MG INTO 4
     Route: 048

REACTIONS (2)
  - WRONG TECHNIQUE IN DRUG USAGE PROCESS [None]
  - DYSARTHRIA [None]
